FAERS Safety Report 23018165 (Version 1)
Quarter: 2023Q4

REPORT INFORMATION
  Report Type: Spontaneous
  Country: CN (occurrence: CN)
  Receive Date: 20231003
  Receipt Date: 20231003
  Transmission Date: 20240110
  Serious: Yes (Hospitalization, Other)
  Sender: FDA-Public Use
  Company Number: None

PATIENT
  Age: 5 Year
  Sex: Female
  Weight: 12.9 kg

DRUGS (3)
  1. CYCLOPHOSPHAMIDE [Suspect]
     Active Substance: CYCLOPHOSPHAMIDE
     Indication: Congenital aplastic anaemia
     Dosage: 0.13 G, ONE TIME IN ONE DAY DILUTED WITH 250 ML OF SODIUM CHLORIDE INTRAVENOUS PUMP (3 HOURS)
     Route: 041
     Dates: start: 20230731, end: 20230803
  2. CYCLOPHOSPHAMIDE [Suspect]
     Active Substance: CYCLOPHOSPHAMIDE
     Indication: Bone marrow conditioning regimen
  3. SODIUM CHLORIDE [Suspect]
     Active Substance: SODIUM CHLORIDE
     Indication: Congenital aplastic anaemia
     Dosage: 250 ML, ONE TIME IN ONE DAY USED TO DILUTE 0.13G OF CYCLOPHOSPHAMIDE INTRAVENOUS PUMP (3 HOURS)
     Route: 041
     Dates: start: 20230731, end: 20230803

REACTIONS (10)
  - Neurogenic bladder [Recovering/Resolving]
  - Cystitis haemorrhagic [Recovering/Resolving]
  - Red blood cells urine positive [Recovering/Resolving]
  - Hypoaesthesia [Recovering/Resolving]
  - Bladder hypertrophy [Recovering/Resolving]
  - Pollakiuria [Recovering/Resolving]
  - Micturition urgency [Recovering/Resolving]
  - Urinary tract discomfort [Recovering/Resolving]
  - Dysuria [Recovering/Resolving]
  - Urinary tract infection [Unknown]

NARRATIVE: CASE EVENT DATE: 20230906
